FAERS Safety Report 7945890-0 (Version None)
Quarter: 2011Q4

REPORT INFORMATION
  Report Type: 
  Country: None (occurrence: None)
  Receive Date: 20111129
  Receipt Date: 20111117
  Transmission Date: 20120403
  Serious: Yes (Death)
  Sender: FDA-Public Use
  Company Number: US-NOVOPROD-339890

PATIENT

DRUGS (1)
  1. NOVOLOG [Suspect]
     Indication: TYPE 2 DIABETES MELLITUS
     Dosage: UNKNOWN
     Route: 058

REACTIONS (6)
  - SKIN LESION [None]
  - NECROTISING FASCIITIS [None]
  - POST PROCEDURAL INFECTION [None]
  - RASH [None]
  - THERMAL BURN [None]
  - SUBCUTANEOUS ABSCESS [None]
